FAERS Safety Report 6523143-5 (Version None)
Quarter: 2009Q4

REPORT INFORMATION
  Report Type: 
  Country: None (occurrence: None)
  Receive Date: 20091222
  Receipt Date: 20091201
  Transmission Date: 20100525
  Serious: Yes (Disabling)
  Sender: FDA-Public Use
  Company Number: 109700

PATIENT
  Sex: Female

DRUGS (3)
  1. DAIVOBET (DAIVOBET  /01643401/) [Suspect]
     Indication: DRUG USE FOR UNKNOWN INDICATION
     Dosage: TOPICAL
     Route: 061
  2. INDERAL [Concomitant]
  3. OMEPRAZOL (OMEPRAZOL) [Concomitant]

REACTIONS (1)
  - MIGRAINE [None]
